FAERS Safety Report 18208761 (Version 2)
Quarter: 2020Q3

REPORT INFORMATION
  Report Type: Spontaneous
  Country: US (occurrence: US)
  Receive Date: 20200828
  Receipt Date: 20200903
  Transmission Date: 20201103
  Serious: Yes (Hospitalization, Other)
  Sender: FDA-Public Use
  Company Number: US-ASTRAZENECA-2019SE11818

PATIENT
  Age: 19670 Day
  Sex: Female
  Weight: 95.3 kg

DRUGS (81)
  1. PROTONIX [Suspect]
     Active Substance: PANTOPRAZOLE SODIUM
     Indication: GASTROOESOPHAGEAL REFLUX DISEASE
     Route: 065
     Dates: start: 200002, end: 201812
  2. GABAPENTIN. [Concomitant]
     Active Substance: GABAPENTIN
     Indication: PAIN
     Dates: start: 2013
  3. RANITIDINE. [Concomitant]
     Active Substance: RANITIDINE
     Dosage: GENERIC
     Dates: start: 201908, end: 201909
  4. CITALOPRAM [Concomitant]
     Active Substance: CITALOPRAM HYDROBROMIDE
  5. ONDANSETRON [Concomitant]
     Active Substance: ONDANSETRON
  6. ASPIRIN. [Concomitant]
     Active Substance: ASPIRIN
  7. METFORMIN [Concomitant]
     Active Substance: METFORMIN HYDROCHLORIDE
  8. TRAZODONE [Concomitant]
     Active Substance: TRAZODONE HYDROCHLORIDE
  9. METHYLPRED [Concomitant]
     Active Substance: METHYLPREDNISOLONE
  10. CYCLOBENZAPR [Concomitant]
     Active Substance: CYCLOBENZAPRINE
  11. PRAVASTATIN SODIUM. [Concomitant]
     Active Substance: PRAVASTATIN SODIUM
  12. TAGAMET [Concomitant]
     Active Substance: CIMETIDINE
  13. ZANTAC [Concomitant]
     Active Substance: RANITIDINE HYDROCHLORIDE
  14. FEXOFENADINE [Concomitant]
     Active Substance: FEXOFENADINE HYDROCHLORIDE
  15. PAXIL [Concomitant]
     Active Substance: PAROXETINE HYDROCHLORIDE
  16. CALCIUM [Concomitant]
     Active Substance: CALCIUM
  17. CLOTRIM/BETA [Concomitant]
  18. LOVASTATIN. [Concomitant]
     Active Substance: LOVASTATIN
  19. MECLIZINE [Concomitant]
     Active Substance: MECLIZINE HYDROCHLORIDE
  20. GLUCAGON. [Concomitant]
     Active Substance: GLUCAGON
  21. CYMBATLA [Concomitant]
  22. ZANAFLEX [Concomitant]
     Active Substance: TIZANIDINE HYDROCHLORIDE
  23. NEXIUM [Suspect]
     Active Substance: ESOMEPRAZOLE MAGNESIUM
     Indication: GASTROOESOPHAGEAL REFLUX DISEASE
     Route: 048
     Dates: start: 2000, end: 2016
  24. PEPCID [Concomitant]
     Active Substance: FAMOTIDINE
  25. TUMS [Concomitant]
     Active Substance: CALCIUM CARBONATE
     Dates: start: 1980
  26. TRAZODONE [Concomitant]
     Active Substance: TRAZODONE HYDROCHLORIDE
  27. PROAIR HFA [Concomitant]
     Active Substance: ALBUTEROL SULFATE
  28. BUPROPION. [Concomitant]
     Active Substance: BUPROPION
  29. DICYCLOMINE [Concomitant]
     Active Substance: DICYCLOMINE HYDROCHLORIDE
  30. TRIMOX [Concomitant]
     Active Substance: AMOXICILLIN
  31. HYOSCYAMINE. [Concomitant]
     Active Substance: HYOSCYAMINE
  32. ZITHROMAX [Concomitant]
     Active Substance: AZITHROMYCIN DIHYDRATE
  33. FLUTICASONE. [Concomitant]
     Active Substance: FLUTICASONE
     Indication: PAIN
     Dates: start: 2013
  34. SIMVASTATIN. [Concomitant]
     Active Substance: SIMVASTATIN
     Indication: BLOOD CHOLESTEROL INCREASED
     Dates: start: 2013
  35. CLOPIDOGREL [Concomitant]
     Active Substance: CLOPIDOGREL BISULFATE
  36. BENZONATATE. [Concomitant]
     Active Substance: BENZONATATE
  37. PREDNISONE. [Concomitant]
     Active Substance: PREDNISONE
  38. WARFARIN [Concomitant]
     Active Substance: WARFARIN
  39. MORPHINE [Concomitant]
     Active Substance: MORPHINE
  40. VITAMIN D [Concomitant]
     Active Substance: VITAMIN D NOS
  41. VITAMIN B12 [Concomitant]
     Active Substance: CYANOCOBALAMIN
  42. DOXAZOSIN [Concomitant]
     Active Substance: DOXAZOSIN MESYLATE
  43. TOPAMAX [Concomitant]
     Active Substance: TOPIRAMATE
  44. DICLOFENAC SODIUM. [Concomitant]
     Active Substance: DICLOFENAC SODIUM
  45. LISINOPRIL. [Concomitant]
     Active Substance: LISINOPRIL
     Indication: HYPERTENSION
     Dates: start: 2013
  46. TRAMADOL. [Concomitant]
     Active Substance: TRAMADOL
     Indication: PAIN
     Dates: start: 2018
  47. OXYCODONE [Concomitant]
     Active Substance: OXYCODONE
     Indication: PAIN
     Dates: start: 2015
  48. ROLAIDS [Concomitant]
     Active Substance: CALCIUM CARBONATE\MAGNESIUM HYDROXIDE
     Dates: start: 1980
  49. PEPTO?BISMOL [Concomitant]
     Active Substance: BISMUTH SUBSALICYLATE
     Dates: start: 1980, end: 2020
  50. GLIPIZIDE. [Concomitant]
     Active Substance: GLIPIZIDE
  51. TRULICITY [Concomitant]
     Active Substance: DULAGLUTIDE
  52. FLUCONAZOLE. [Concomitant]
     Active Substance: FLUCONAZOLE
  53. TYLENOL [Concomitant]
     Active Substance: ACETAMINOPHEN
  54. BENADRYL [Concomitant]
     Active Substance: DIPHENHYDRAMINE HYDROCHLORIDE
  55. ALKA?SELTZER [Concomitant]
     Active Substance: ANHYDROUS CITRIC ACID\ASPIRIN\SODIUM BICARBONATE
  56. METRONIDAZOLE. [Concomitant]
     Active Substance: METRONIDAZOLE
  57. DILTIAZ [Concomitant]
     Active Substance: DILTIAZEM HYDROCHLORIDE
  58. LIDOCAINE VISCOUS [Concomitant]
     Active Substance: LIDOCAINE HYDROCHLORIDE
  59. NEXIUM [Suspect]
     Active Substance: ESOMEPRAZOLE MAGNESIUM
     Indication: GASTROOESOPHAGEAL REFLUX DISEASE
     Route: 048
     Dates: start: 200002, end: 201812
  60. PROTONIX [Suspect]
     Active Substance: PANTOPRAZOLE SODIUM
     Indication: GASTROOESOPHAGEAL REFLUX DISEASE
     Dosage: GENERIC
     Route: 065
     Dates: start: 2017, end: 2018
  61. METOPROLOL. [Concomitant]
     Active Substance: METOPROLOL
  62. HYDROXYZINE [Concomitant]
     Active Substance: HYDROXYZINE HYDROCHLORIDE
  63. MAALOX ANTACID [Concomitant]
     Active Substance: ALUMINUM HYDROXIDE\DIMETHICONE\MAGNESIUM HYDROXIDE
  64. PROMETHAZINE [Concomitant]
     Active Substance: PROMETHAZINE HYDROCHLORIDE
  65. DARVOCET [Concomitant]
     Active Substance: ACETAMINOPHEN\PROPOXYPHENE HYDROCHLORIDE
  66. KEFLEX [Concomitant]
     Active Substance: CEPHALEXIN
  67. TIZANIDINE. [Concomitant]
     Active Substance: TIZANIDINE
  68. SULINDAC. [Concomitant]
     Active Substance: SULINDAC
  69. SINGULAIR [Concomitant]
     Active Substance: MONTELUKAST SODIUM
  70. OMEPRAZOLE. [Suspect]
     Active Substance: OMEPRAZOLE
     Indication: GASTROOESOPHAGEAL REFLUX DISEASE
     Dosage: GENERIC
     Route: 065
     Dates: start: 2013, end: 2015
  71. OMEPRAZOLE. [Suspect]
     Active Substance: OMEPRAZOLE
     Indication: GASTROOESOPHAGEAL REFLUX DISEASE
     Route: 048
     Dates: start: 20150108
  72. PROTONIX [Suspect]
     Active Substance: PANTOPRAZOLE SODIUM
     Indication: GASTROOESOPHAGEAL REFLUX DISEASE
     Route: 065
     Dates: start: 2018
  73. FUROSEMIDE. [Concomitant]
     Active Substance: FUROSEMIDE
     Indication: CARDIAC FAILURE CONGESTIVE
     Dates: start: 2013
  74. HYDROCODONE?ACETAMINOPHEN [Concomitant]
     Active Substance: ACETAMINOPHEN\HYDROCODONE
  75. ATROVENT [Concomitant]
     Active Substance: IPRATROPIUM BROMIDE
  76. CARVEDILOL. [Concomitant]
     Active Substance: CARVEDILOL
  77. LEVOTHYROXINE. [Concomitant]
     Active Substance: LEVOTHYROXINE
  78. ROPINIROLE. [Concomitant]
     Active Substance: ROPINIROLE
  79. SENNA [Concomitant]
     Active Substance: SENNA LEAF\SENNOSIDES\SENNOSIDES A AND B
  80. JANUVIA [Concomitant]
     Active Substance: SITAGLIPTIN PHOSPHATE
  81. PROVENTIL [Concomitant]
     Active Substance: ALBUTEROL

REACTIONS (4)
  - End stage renal disease [Unknown]
  - Chronic kidney disease [Not Recovered/Not Resolved]
  - Acute kidney injury [Not Recovered/Not Resolved]
  - Renal failure [Not Recovered/Not Resolved]

NARRATIVE: CASE EVENT DATE: 20140619
